FAERS Safety Report 12292758 (Version 1)
Quarter: 2016Q2

REPORT INFORMATION
  Report Type: Report from Study
  Country: US (occurrence: US)
  Receive Date: 20160421
  Receipt Date: 20160421
  Transmission Date: 20160815
  Serious: No
  Sender: FDA-Public Use
  Company Number: US-AMGEN-USASL2016028342

PATIENT
  Age: 75 Year
  Sex: Male

DRUGS (1)
  1. REPATHA [Suspect]
     Active Substance: EVOLOCUMAB
     Indication: HYPERCHOLESTEROLAEMIA
     Dosage: 140 MG, Q2WK
     Route: 065
     Dates: start: 201602

REACTIONS (8)
  - Headache [Unknown]
  - Pain [Unknown]
  - Pain in extremity [Unknown]
  - Cough [Unknown]
  - Onychalgia [Unknown]
  - Influenza like illness [Unknown]
  - Myalgia [Unknown]
  - Toothache [Unknown]

NARRATIVE: CASE EVENT DATE: 201602
